FAERS Safety Report 5126775-4 (Version None)
Quarter: 2006Q4

REPORT INFORMATION
  Report Type: 
  Country: None (occurrence: None)
  Receive Date: 20061010
  Receipt Date: 20060927
  Transmission Date: 20070319
  Serious: Yes (Other)
  Sender: FDA-Public Use
  Company Number: 2006117394

PATIENT
  Age: 39 Year
  Sex: Female
  Weight: 78.4723 kg

DRUGS (3)
  1. DEPO-PROVERA [Suspect]
     Indication: CONTRACEPTION
     Dosage: SEE IMAGE
     Dates: start: 19970101, end: 19970101
  2. DEPO-PROVERA [Suspect]
     Indication: CONTRACEPTION
     Dosage: SEE IMAGE
     Dates: start: 19980101, end: 19980101
  3. DEPO-PROVERA [Suspect]
     Indication: CONTRACEPTION
     Dosage: SEE IMAGE
     Dates: start: 20060501, end: 20060501

REACTIONS (5)
  - AMENORRHOEA [None]
  - CERVIX DISORDER [None]
  - MENORRHAGIA [None]
  - NAUSEA [None]
  - WEIGHT INCREASED [None]
